FAERS Safety Report 7720490-6 (Version None)
Quarter: 2011Q3

REPORT INFORMATION
  Report Type: 
  Country: None (occurrence: None)
  Receive Date: 20110831
  Receipt Date: 20110404
  Transmission Date: 20111222
  Serious: No
  Sender: FDA-Public Use
  Company Number: US-KINGPHARMUSA00001-K201100412

PATIENT
  Sex: Female
  Weight: 48.526 kg

DRUGS (4)
  1. WELLBUTRIN [Concomitant]
     Dosage: 150 MG, QD
     Route: 048
  2. SYNTHROID [Concomitant]
     Dosage: 0.075 MCG, QD
     Route: 048
  3. PENICILLIN G PROCAINE [Suspect]
     Dosage: UNK
  4. ANTIHYPERTENSIVES [Concomitant]

REACTIONS (1)
  - DRUG HYPERSENSITIVITY [None]
